FAERS Safety Report 18343448 (Version 6)
Quarter: 2020Q4

REPORT INFORMATION
  Report Type: Spontaneous
  Country: US (occurrence: US)
  Receive Date: 20201005
  Receipt Date: 20201124
  Transmission Date: 20210113
  Serious: No
  Sender: FDA-Public Use
  Company Number: US-PFIZER INC-2020374686

PATIENT
  Age: 45 Year
  Sex: Female
  Weight: 86.18 kg

DRUGS (1)
  1. GENOTROPIN [Suspect]
     Active Substance: SOMATROPIN
     Dosage: UNK

REACTIONS (3)
  - Exposure via skin contact [Unknown]
  - Device leakage [Unknown]
  - Accidental exposure to product [Unknown]
